FAERS Safety Report 23409421 (Version 2)
Quarter: 2024Q1

REPORT INFORMATION
  Report Type: Spontaneous
  Country: None (occurrence: FR)
  Receive Date: 20240117
  Receipt Date: 20240130
  Transmission Date: 20240409
  Serious: Yes (Hospitalization)
  Sender: FDA-Public Use
  Company Number: FR-B.Braun Medical Inc.-2151420

PATIENT
  Age: 53 Year
  Sex: Female
  Weight: 74 kg

DRUGS (6)
  1. ACETAMINOPHEN [Suspect]
     Active Substance: ACETAMINOPHEN
     Indication: Pain
  2. HYDROXYZINE HYDROCHLORIDE [Suspect]
     Active Substance: HYDROXYZINE HYDROCHLORIDE
  3. TRAMADOL HYDROCHLORIDE [Suspect]
     Active Substance: TRAMADOL HYDROCHLORIDE
  4. FUROSEMIDE [Suspect]
     Active Substance: FUROSEMIDE
  5. SPIRONOLACTONE [Suspect]
     Active Substance: SPIRONOLACTONE
  6. PROCAINE HYDROCHLORIDE [Suspect]
     Active Substance: PROCAINE HYDROCHLORIDE

REACTIONS (1)
  - Autoimmune haemolytic anaemia [None]
